FAERS Safety Report 4721941-1 (Version None)
Quarter: 2005Q3

REPORT INFORMATION
  Report Type: 
  Country: None (occurrence: None)
  Receive Date: 20050722
  Receipt Date: 20050711
  Transmission Date: 20060218
  Serious: Yes (Death, Hospitalization)
  Sender: FDA-Public Use
  Company Number: US-BRISTOL-MYERS SQUIBB COMPANY-13033220

PATIENT
  Age: 81 Year
  Sex: Male
  Weight: 70 kg

DRUGS (7)
  1. COUMADIN [Suspect]
     Indication: THROMBOSIS
  2. SYNTHROID [Concomitant]
  3. CORDARONE [Concomitant]
  4. PRILOSEC [Concomitant]
  5. LIPITOR [Concomitant]
  6. MUCINEX [Concomitant]
  7. SPIRONOLACTONE [Concomitant]

REACTIONS (2)
  - DEATH [None]
  - SEPSIS [None]
